FAERS Safety Report 7550151-8 (Version None)
Quarter: 2011Q2

REPORT INFORMATION
  Report Type: 
  Country: None (occurrence: None)
  Receive Date: 20110615
  Receipt Date: 20110531
  Transmission Date: 20111010
  Serious: No
  Sender: FDA-Public Use
  Company Number: US-B.I. PHARMACEUTICALS,INC./RIDGEFIELD-2011-BP-12547BP

PATIENT
  Sex: Female

DRUGS (17)
  1. VITAMIN TAB [Concomitant]
     Route: 048
  2. PRADAXA [Suspect]
     Indication: ATRIAL FIBRILLATION
     Dosage: 300 MG
     Route: 048
     Dates: start: 20110422, end: 20110504
  3. FISH OIL [Concomitant]
     Route: 048
  4. TRAMADOL HCL [Concomitant]
     Route: 048
  5. ZETIA [Concomitant]
     Indication: BLOOD CHOLESTEROL INCREASED
     Route: 048
  6. TYLENOL (CAPLET) [Concomitant]
  7. VITAMIN D [Concomitant]
     Indication: PARATHYROID DISORDER
     Route: 048
  8. CRESTOR [Concomitant]
     Indication: BLOOD CHOLESTEROL INCREASED
     Route: 048
     Dates: start: 20110505
  9. COMBIVENT [Concomitant]
  10. CENTRUM SILVER [Concomitant]
  11. PRADAXA [Suspect]
     Indication: ANTICOAGULANT THERAPY
  12. UNISOM [Concomitant]
  13. COSAMIN [Concomitant]
  14. ESTRADIOL [Concomitant]
     Route: 048
  15. FLECAINIDE ACETATE [Concomitant]
     Indication: ATRIAL FIBRILLATION
     Route: 048
  16. ATENOLOL [Concomitant]
     Indication: HYPERTENSION
     Route: 048
  17. CORRECTOL [Concomitant]

REACTIONS (4)
  - ERYTHEMA [None]
  - THROAT IRRITATION [None]
  - PHARYNGEAL ERYTHEMA [None]
  - PRURITUS [None]
